FAERS Safety Report 21731123 (Version 3)
Quarter: 2023Q1

REPORT INFORMATION
  Report Type: Spontaneous
  Country: US (occurrence: US)
  Receive Date: 20221215
  Receipt Date: 20230202
  Transmission Date: 20230417
  Serious: Yes (Other)
  Sender: FDA-Public Use
  Company Number: US-SUN PHARMACEUTICAL INDUSTRIES LTD-2022R1-368358

PATIENT
  Age: 22 Year
  Sex: Female

DRUGS (8)
  1. ATORVASTATIN [Suspect]
     Active Substance: ATORVASTATIN
     Indication: Glomerulosclerosis
     Dosage: UNK
     Route: 065
  2. ATORVASTATIN [Suspect]
     Active Substance: ATORVASTATIN
     Indication: Fibrosis
  3. FUROSEMIDE [Suspect]
     Active Substance: FUROSEMIDE
     Indication: Glomerulosclerosis
     Dosage: UNK
     Route: 065
  4. FUROSEMIDE [Suspect]
     Active Substance: FUROSEMIDE
     Indication: Fibrosis
  5. LOSARTAN [Suspect]
     Active Substance: LOSARTAN
     Indication: Glomerulosclerosis
     Dosage: UNK
     Route: 065
  6. LOSARTAN [Suspect]
     Active Substance: LOSARTAN
     Indication: Fibrosis
  7. PREDNISONE [Suspect]
     Active Substance: PREDNISONE
     Indication: Glomerulosclerosis
     Dosage: 60 MILLIGRAM, DAILY
     Route: 065
  8. PREDNISONE [Suspect]
     Active Substance: PREDNISONE
     Indication: Fibrosis

REACTIONS (1)
  - Condition aggravated [Unknown]
